FAERS Safety Report 7757564-X (Version None)
Quarter: 2011Q3

REPORT INFORMATION
  Report Type: 
  Country: None (occurrence: None)
  Receive Date: 20110916
  Receipt Date: 20110914
  Transmission Date: 20111222
  Serious: Yes (Other)
  Sender: FDA-Public Use
  Company Number: US-ABBOTT-11P-163-0847830-00

PATIENT
  Age: 66 Year
  Sex: Male
  Weight: 87.622 kg

DRUGS (5)
  1. HUMIRA [Suspect]
     Indication: PSORIATIC ARTHROPATHY
     Dates: end: 20100524
  2. HUMIRA [Suspect]
     Dates: start: 20101015, end: 20110901
  3. LIPITOR [Concomitant]
     Indication: PRODUCT USED FOR UNKNOWN INDICATION
  4. HUMIRA [Suspect]
     Indication: PSORIASIS
     Dates: start: 20060301, end: 20070101
  5. UNKNOWN BLOOD PRESSURE MEDICATION [Concomitant]
     Indication: HYPERTENSION

REACTIONS (7)
  - ACCIDENT [None]
  - DRUG INEFFECTIVE [None]
  - SKIN ULCER [None]
  - CELLULITIS STAPHYLOCOCCAL [None]
  - DERMATITIS EXFOLIATIVE [None]
  - LIMB INJURY [None]
  - ARTHRALGIA [None]
